FAERS Safety Report 25318389 (Version 3)
Quarter: 2025Q4

REPORT INFORMATION
  Report Type: Report from Study
  Country: US (occurrence: US)
  Receive Date: 20250515
  Receipt Date: 20251231
  Transmission Date: 20260118
  Serious: Yes (Other)
  Sender: PFIZER
  Company Number: US-PFIZER INC-PV202500058353

PATIENT
  Age: 83 Year
  Sex: Female

DRUGS (2)
  1. IBRANCE [Suspect]
     Active Substance: PALBOCICLIB
     Indication: Breast cancer female
     Dosage: 75 MG
  2. IBRANCE [Suspect]
     Active Substance: PALBOCICLIB
     Dosage: 100 MG

REACTIONS (9)
  - Breast cancer female [Unknown]
  - Malignant neoplasm progression [Unknown]
  - Fatigue [Unknown]
  - Skin exfoliation [Unknown]
  - Dysgeusia [Unknown]
  - Nausea [Unknown]
  - Dry mouth [Unknown]
  - Arthritis [Unknown]
  - Arthralgia [Unknown]
